FAERS Safety Report 4872043-5 (Version None)
Quarter: 2006Q1

REPORT INFORMATION
  Report Type: 
  Country: None (occurrence: None)
  Receive Date: 20060104
  Receipt Date: 20051229
  Transmission Date: 20060701
  Serious: Yes (Hospitalization)
  Sender: FDA-Public Use
  Company Number: US-KINGPHARMUSA00001-K200501650

PATIENT
  Age: 31 Year
  Sex: Female

DRUGS (2)
  1. SONATA [Suspect]
     Dosage: 40 MG (4 CAPSULES), SINGLE
     Route: 048
     Dates: start: 20051225, end: 20051225
  2. AMINEURIN [Suspect]
     Dosage: 1500 MG, SINGLE
     Route: 048
     Dates: start: 20051225, end: 20051225

REACTIONS (2)
  - INTENTIONAL OVERDOSE [None]
  - SUICIDE ATTEMPT [None]
